FAERS Safety Report 9497478 (Version 2)
Quarter: 2013Q3

REPORT INFORMATION
  Report Type: Spontaneous
  Country: US (occurrence: US)
  Receive Date: 20130904
  Receipt Date: 20130904
  Transmission Date: 20140515
  Serious: No
  Sender: FDA-Public Use
  Company Number: US-AMGEN-USASP2013049297

PATIENT
  Age: 66 Year
  Sex: Female

DRUGS (3)
  1. ENBREL [Suspect]
     Indication: RHEUMATOID ARTHRITIS
     Dosage: 50MG WEEKLY BETWEEN 7-10 DAYS
     Route: 058
     Dates: start: 200905
  2. METHOTREXATE [Concomitant]
     Indication: RHEUMATOID ARTHRITIS
     Dosage: 7.5 MG, QWK
     Route: 048
     Dates: start: 2005
  3. FEXOFENADINE [Concomitant]
     Indication: RHINITIS ALLERGIC
     Dosage: 80 G, PRN
     Route: 048

REACTIONS (4)
  - Arthropod sting [Recovered/Resolved]
  - Pain [Recovered/Resolved]
  - Local swelling [Not Recovered/Not Resolved]
  - Discomfort [Not Recovered/Not Resolved]
